FAERS Safety Report 12375245 (Version 1)
Quarter: 2016Q2

REPORT INFORMATION
  Report Type: Spontaneous
  Country: US (occurrence: None)
  Receive Date: 20160516
  Receipt Date: 20160516
  Transmission Date: 20160815
  Serious: Yes (Hospitalization)
  Sender: FDA-Public Use
  Company Number: None

PATIENT
  Age: 62 Year
  Sex: Male
  Weight: 74.84 kg

DRUGS (5)
  1. LOSARTAN/HCTZ [Concomitant]
     Active Substance: HYDROCHLOROTHIAZIDE\LOSARTAN
  2. SIMVASTATIN. [Concomitant]
     Active Substance: SIMVASTATIN
  3. CO-Q10 [Concomitant]
  4. CENTRUM MEN 50+ [Concomitant]
  5. AMOXICILLIN AND CLAVULANATE POTA, 1000 MG AUROBINDO PHARMA LIMITED [Suspect]
     Active Substance: AMOXICILLIN\CLAVULANATE POTASSIUM
     Indication: SINUSITIS
     Dosage: AMOXICILLIN AND CLAVULANATE POTA, 1000 MG?20 TABLETS TWICE A DAY TAKEN BY MOUTH
     Route: 048
     Dates: start: 20160420, end: 20160424

REACTIONS (7)
  - Abdominal pain upper [None]
  - Chills [None]
  - Sinusitis [None]
  - Ageusia [None]
  - Dysuria [None]
  - Diarrhoea [None]
  - Condition aggravated [None]

NARRATIVE: CASE EVENT DATE: 20160424
